FAERS Safety Report 24573090 (Version 5)
Quarter: 2025Q3

REPORT INFORMATION
  Report Type: Report from Study
  Country: US (occurrence: US)
  Receive Date: 20241101
  Receipt Date: 20250721
  Transmission Date: 20251021
  Serious: Yes (Other)
  Sender: SUNOVION
  Company Number: US-SUMITOMO PHARMA SWITZERLAND GMBH-2024SPA004510

PATIENT

DRUGS (3)
  1. ORGOVYX [Suspect]
     Active Substance: RELUGOLIX
     Indication: Prostate cancer
     Route: 048
     Dates: start: 20241019, end: 20241019
  2. ORGOVYX [Suspect]
     Active Substance: RELUGOLIX
     Dosage: 120 MG, QD
     Route: 048
     Dates: start: 20241020
  3. NUBEQA [Concomitant]
     Active Substance: DAROLUTAMIDE
     Route: 065

REACTIONS (11)
  - Neuropathy peripheral [Unknown]
  - Sleep disorder [Unknown]
  - Prostatic specific antigen increased [Unknown]
  - Heart rate increased [Unknown]
  - Discomfort [Unknown]
  - Pain [Unknown]
  - Urinary tract infection [Unknown]
  - Musculoskeletal chest pain [Unknown]
  - Hot flush [Recovering/Resolving]
  - Fatigue [Unknown]
  - Weight increased [Unknown]
